FAERS Safety Report 5276313-0 (Version None)
Quarter: 2007Q1

REPORT INFORMATION
  Report Type: 
  Country: None (occurrence: None)
  Receive Date: 20070326
  Receipt Date: 20041210
  Transmission Date: 20070707
  Serious: Yes (Other)
  Sender: FDA-Public Use
  Company Number: US-PFIZER INC-2007019642

PATIENT

DRUGS (1)
  1. BEXTRA [Suspect]

REACTIONS (5)
  - FALL [None]
  - HIP ARTHROPLASTY [None]
  - NEUROPATHY PERIPHERAL [None]
  - PATELLA FRACTURE [None]
  - PERONEAL NERVE PALSY [None]
